FAERS Safety Report 9312962 (Version 1)
Quarter: 2013Q2

REPORT INFORMATION
  Report Type: Spontaneous
  Country: US (occurrence: US)
  Receive Date: 20130528
  Receipt Date: 20130528
  Transmission Date: 20140414
  Serious: No
  Sender: FDA-Public Use
  Company Number: US-ABBOTT-13P-163-1070652-00

PATIENT
  Sex: 0

DRUGS (2)
  1. ANDROGEL [Suspect]
     Indication: BLOOD TESTOSTERONE DECREASED
  2. ANDROGEL [Suspect]
     Indication: HYPOGONADISM

REACTIONS (3)
  - Mood swings [Unknown]
  - Unevaluable event [Unknown]
  - Drug administration error [Unknown]
